FAERS Safety Report 5835133-6 (Version None)
Quarter: 2008Q3

REPORT INFORMATION
  Report Type: 
  Country: None (occurrence: None)
  Receive Date: 20080805
  Receipt Date: 20080805
  Transmission Date: 20090109
  Serious: Yes (Other)
  Sender: FDA-Public Use
  Company Number: None

PATIENT
  Age: 63 Year
  Sex: Female
  Weight: 119.296 kg

DRUGS (1)
  1. CEFTRIAXONE [Suspect]
     Indication: CHRONIC OBSTRUCTIVE PULMONARY DISEASE
     Dosage: 1GM EVERY 24 HOURS IV ONLY ONE DOSE GIVEN
     Route: 042
     Dates: start: 20080801, end: 20080802

REACTIONS (2)
  - ERYTHEMA [None]
  - RASH [None]
